FAERS Safety Report 15862427 (Version 1)
Quarter: 2018Q4

REPORT INFORMATION
  Report Type: Spontaneous
  Country: US (occurrence: US)
  Receive Date: 20181231
  Receipt Date: 20181231
  Transmission Date: 20190205
  Serious: Yes (Life-Threatening)
  Sender: FDA-Public Use
  Company Number: None

PATIENT
  Age: 33 Year
  Sex: Female
  Weight: 91.7 kg

DRUGS (2)
  1. CALCITRIOL. [Concomitant]
     Active Substance: CALCITRIOL
  2. MIRCERA [Suspect]
     Active Substance: METHOXY POLYETHYLENE GLYCOL-EPOETIN BETA
     Indication: ANAEMIA
     Dosage: ?          OTHER FREQUENCY:EVERY 2 WEEKS;OTHER ROUTE:INTRAVENOUS PUSH?
     Route: 042
     Dates: start: 20180131, end: 20180131

REACTIONS (4)
  - Blood pressure decreased [None]
  - Dialysis [None]
  - Pulmonary embolism [None]
  - Unresponsive to stimuli [None]

NARRATIVE: CASE EVENT DATE: 20180131
